FAERS Safety Report 25240610 (Version 3)
Quarter: 2025Q4

REPORT INFORMATION
  Report Type: Report from Study
  Country: CA (occurrence: CA)
  Receive Date: 20250425
  Receipt Date: 20251015
  Transmission Date: 20260117
  Serious: Yes (Other)
  Sender: PFIZER
  Company Number: CA-TAKEDA-2022TUS071844

PATIENT
  Age: 64 Year
  Sex: Male

DRUGS (9)
  1. PANTOPRAZOLE SODIUM [Suspect]
     Active Substance: PANTOPRAZOLE SODIUM
     Dosage: UNK
     Route: 065
  2. ENTYVIO [Suspect]
     Active Substance: VEDOLIZUMAB
     Indication: Crohn^s disease
     Dosage: 300 MILLIGRAM (WEEK 0, 2, 6 EVERY 8 WEEKS)
     Route: 042
     Dates: start: 20210923
  3. ENTYVIO [Suspect]
     Active Substance: VEDOLIZUMAB
     Dosage: 300 MILLIGRAM (WEEK 0, 2, 6 EVERY 8 WEEKS)
     Route: 042
  4. ENTYVIO [Suspect]
     Active Substance: VEDOLIZUMAB
     Dosage: 300 MILLIGRAM (WEEK 0, 2, 6 EVERY 8 WEEKS)
     Route: 042
  5. ENTYVIO [Suspect]
     Active Substance: VEDOLIZUMAB
     Dosage: 300 MILLIGRAM (WEEK 0, 2, 6 EVERY 8 WEEKS)
     Route: 042
  6. ENTYVIO [Suspect]
     Active Substance: VEDOLIZUMAB
     Dosage: 300 MILLIGRAM (WEEK 0, 2, 6 EVERY 8 WEEKS)
     Route: 042
  7. ENTYVIO [Suspect]
     Active Substance: VEDOLIZUMAB
     Dosage: 300 MILLIGRAM, Q4WEEKS
     Route: 042
     Dates: start: 20250417
  8. ENTYVIO [Suspect]
     Active Substance: VEDOLIZUMAB
     Dosage: 300 MILLIGRAM, Q4WEEKS
     Route: 042
  9. STELARA [Concomitant]
     Active Substance: USTEKINUMAB
     Dosage: UNK

REACTIONS (3)
  - Crohn^s disease [Not Recovered/Not Resolved]
  - Diarrhoea [Unknown]
  - Abdominal pain [Unknown]
